FAERS Safety Report 8481300-5 (Version None)
Quarter: 2012Q3

REPORT INFORMATION
  Report Type: 
  Country: None (occurrence: None)
  Receive Date: 20120702
  Receipt Date: 20120627
  Transmission Date: 20120928
  Serious: Yes (Life-Threatening, Hospitalization, Other)
  Sender: FDA-Public Use
  Company Number: US-ASTRAZENECA-2011SE43812

PATIENT
  Age: 27 Year
  Sex: Male
  Weight: 79.8 kg

DRUGS (2)
  1. SEROQUEL [Suspect]
     Route: 048
  2. SEROQUEL [Suspect]
     Indication: BIPOLAR DISORDER
     Route: 048

REACTIONS (5)
  - SUICIDE ATTEMPT [None]
  - SUICIDAL IDEATION [None]
  - INSOMNIA [None]
  - TACHYPHRENIA [None]
  - DRUG DOSE OMISSION [None]
